FAERS Safety Report 17105271 (Version 1)
Quarter: 2019Q4

REPORT INFORMATION
  Report Type: Spontaneous
  Country: ES (occurrence: ES)
  Receive Date: 20191203
  Receipt Date: 20191203
  Transmission Date: 20200122
  Serious: Yes (Hospitalization)
  Sender: FDA-Public Use
  Company Number: ES-TEVA-2019-ES-1144977

PATIENT
  Age: 73 Year
  Sex: Male

DRUGS (2)
  1. CARBOPLATINO [Suspect]
     Active Substance: CARBOPLATIN
     Dates: start: 20190514, end: 20190722
  2. ETOPOSIDO [Suspect]
     Active Substance: ETOPOSIDE
     Dates: start: 20190514, end: 20190722

REACTIONS (2)
  - Febrile neutropenia [Recovered/Resolved]
  - Thrombocytopenia [Recovered/Resolved]

NARRATIVE: CASE EVENT DATE: 20190802
